FAERS Safety Report 6912704-7 (Version None)
Quarter: 2010Q3

REPORT INFORMATION
  Report Type: 
  Country: None (occurrence: None)
  Receive Date: 20100806
  Receipt Date: 20080930
  Transmission Date: 20110219
  Serious: No
  Sender: FDA-Public Use
  Company Number: US-PFIZER INC-2008082803

PATIENT
  Sex: Female
  Weight: 102.27 kg

DRUGS (5)
  1. DETROL LA [Suspect]
     Indication: URINARY INCONTINENCE
     Route: 048
     Dates: start: 20080710, end: 20080920
  2. VALSARTAN [Concomitant]
     Indication: HYPERTENSION
  3. METOPROLOL [Concomitant]
     Indication: HYPERTENSION
  4. WELLBUTRIN [Concomitant]
  5. PREVACID [Concomitant]

REACTIONS (2)
  - VISION BLURRED [None]
  - VISUAL IMPAIRMENT [None]
